FAERS Safety Report 21891511 (Version 9)
Quarter: 2024Q4

REPORT INFORMATION
  Report Type: Other
  Country: CA (occurrence: CA)
  Receive Date: 20230120
  Receipt Date: 20241125
  Transmission Date: 20250114
  Serious: Yes (Hospitalization, Other)
  Sender: PFIZER
  Company Number: CA-PFIZER INC-202300024599

PATIENT
  Age: 53 Year
  Sex: Female

DRUGS (55)
  1. LORAZEPAM [Interacting]
     Active Substance: LORAZEPAM
     Dosage: 1 MG, 1X/DAY
     Route: 065
  2. LORAZEPAM [Interacting]
     Active Substance: LORAZEPAM
     Dosage: 1 MG, 1X/DAY
     Route: 048
  3. SOMATROPIN [Suspect]
     Active Substance: SOMATROPIN
     Dosage: UNK
     Route: 065
  4. SOMATROPIN [Suspect]
     Active Substance: SOMATROPIN
     Dosage: UNK
     Route: 062
  5. VARENICLINE TARTRATE [Interacting]
     Active Substance: VARENICLINE TARTRATE
     Dosage: 0.5 MG, 1X/DAY
     Route: 065
  6. VARENICLINE TARTRATE [Interacting]
     Active Substance: VARENICLINE TARTRATE
     Dosage: 150 MG
     Route: 065
  7. VENLAFAXINE HCL [Interacting]
     Active Substance: VENLAFAXINE HYDROCHLORIDE
     Dosage: 150 MG
     Route: 065
  8. ESTRADIOL [Suspect]
     Active Substance: ESTRADIOL
     Dosage: 1 DF (EVERY 2 MONTHS)
     Route: 062
  9. ESTRADIOL [Suspect]
     Active Substance: ESTRADIOL
     Dosage: 50 MG, 1X/DAY
     Route: 062
  10. DIETARY SUPPLEMENT\PROBIOTICS [Suspect]
     Active Substance: DIETARY SUPPLEMENT\PROBIOTICS NOS
     Dosage: 1 DF, 3X/DAY
     Route: 048
  11. DIETARY SUPPLEMENT\PROBIOTICS [Suspect]
     Active Substance: DIETARY SUPPLEMENT\PROBIOTICS NOS
     Dosage: UNK
     Route: 048
  12. BUDESONIDE\FORMOTEROL FUMARATE [Suspect]
     Active Substance: BUDESONIDE\FORMOTEROL FUMARATE
     Dosage: 1 DF, 2X/DAY
     Route: 065
  13. BUDESONIDE\FORMOTEROL FUMARATE [Suspect]
     Active Substance: BUDESONIDE\FORMOTEROL FUMARATE
     Dosage: 1 DF, 2X/DAY
     Route: 048
  14. BUDESONIDE\FORMOTEROL FUMARATE [Suspect]
     Active Substance: BUDESONIDE\FORMOTEROL FUMARATE
     Dosage: 2 MG, 2X/DAY
  15. BUDESONIDE\FORMOTEROL FUMARATE [Suspect]
     Active Substance: BUDESONIDE\FORMOTEROL FUMARATE
     Dosage: 200 MG, 2X/DAY
  16. BUDESONIDE\FORMOTEROL FUMARATE [Suspect]
     Active Substance: BUDESONIDE\FORMOTEROL FUMARATE
     Dosage: 6 MG, 2X/DAY
  17. BUDESONIDE\FORMOTEROL FUMARATE [Suspect]
     Active Substance: BUDESONIDE\FORMOTEROL FUMARATE
     Dosage: UNK
  18. LINOLEIC ACID, CONJUGATED [Suspect]
     Active Substance: LINOLEIC ACID, CONJUGATED
     Dosage: 1 DF, 3X/DAY
     Route: 048
  19. LINOLEIC ACID, CONJUGATED [Suspect]
     Active Substance: LINOLEIC ACID, CONJUGATED
     Dosage: 1 DF, 3X/DAY
     Route: 048
  20. FISH OIL [Suspect]
     Active Substance: FISH OIL
     Dosage: 1 DF, 2X/DAY
     Route: 048
  21. FISH OIL [Suspect]
     Active Substance: FISH OIL
     Dosage: 1 DF, 2X/DAY
     Route: 048
  22. FISH OIL [Suspect]
     Active Substance: FISH OIL
     Dosage: UNK, 2X/DAY
     Route: 048
  23. MSM [Suspect]
     Active Substance: DIMETHYL SULFONE
     Dosage: 1000 MG, 3X/DAY
     Route: 065
  24. PROGESTERONE [Suspect]
     Active Substance: PROGESTERONE
     Dosage: 100 MG
     Route: 065
  25. PROGESTERONE [Suspect]
     Active Substance: PROGESTERONE
     Dosage: UNK
     Route: 048
  26. PROGESTERONE [Suspect]
     Active Substance: PROGESTERONE
     Dosage: 100 MG
     Route: 048
  27. PROGESTERONE [Suspect]
     Active Substance: PROGESTERONE
     Dosage: 100 MG, DAILY
     Route: 048
  28. VITAMIN D NOS [Suspect]
     Active Substance: CHOLECALCIFEROL\ERGOCALCIFEROL
     Dosage: 1000 IU, 1X/DAY
     Route: 048
  29. VITAMINS NOS [Suspect]
     Active Substance: VITAMINS
     Dosage: 1 DF, 2X/DAY
     Route: 048
  30. BIFIDOBACTERIUM LONGUM [Suspect]
     Active Substance: BIFIDOBACTERIUM LONGUM
     Dosage: UNK
     Route: 048
  31. DOCONEXENT [Suspect]
     Active Substance: DOCONEXENT
     Dosage: UNK
     Route: 065
  32. DOCONEXENT [Suspect]
     Active Substance: DOCONEXENT
     Dosage: 120 MG, 2X/DAY
     Route: 048
  33. ICOSAPENT [Suspect]
     Active Substance: ICOSAPENT
     Dosage: UNK
     Route: 048
  34. ICOSAPENT [Suspect]
     Active Substance: ICOSAPENT
     Dosage: 180 MG, 2X/DAY
     Route: 048
  35. ERGOCALCIFEROL [Suspect]
     Active Substance: ERGOCALCIFEROL
     Dosage: 1000 IU
     Route: 048
  36. ERGOCALCIFEROL [Suspect]
     Active Substance: ERGOCALCIFEROL
     Dosage: 1000 IU, 1X/DAY
     Route: 048
  37. LACTOBACILLUS ACIDOPHILUS [Suspect]
     Active Substance: LACTOBACILLUS ACIDOPHILUS
     Dosage: UNK
     Route: 048
  38. LACTOBACILLUS ACIDOPHILUS [Suspect]
     Active Substance: LACTOBACILLUS ACIDOPHILUS
     Dosage: UNK, 3X/DAY
     Route: 048
  39. THIOCTIC ACID [Suspect]
     Active Substance: THIOCTIC ACID
     Dosage: UNK
     Route: 065
  40. THIOCTIC ACID [Suspect]
     Active Substance: THIOCTIC ACID
     Dosage: 3.75 MG, 1X/DAY
  41. UBIDECARENONE [Suspect]
     Active Substance: UBIDECARENONE
     Dosage: UNK
     Route: 065
  42. UBIDECARENONE [Suspect]
     Active Substance: UBIDECARENONE
     Dosage: UNK
     Route: 048
  43. UBIDECARENONE [Suspect]
     Active Substance: UBIDECARENONE
     Dosage: 3.75 MG
     Route: 048
  44. RETINOL [Suspect]
     Active Substance: RETINOL
     Dosage: UNK
     Route: 048
  45. RETINOL [Suspect]
     Active Substance: RETINOL
     Dosage: 188 MG, 2X/DAY
  46. VITAMIN C [Suspect]
     Active Substance: ASCORBIC ACID
     Dosage: UNK
     Route: 048
  47. VITAMIN C [Suspect]
     Active Substance: ASCORBIC ACID
     Dosage: 15 MG, 2X/DAY
     Route: 048
  48. .ALPHA.-TOCOPHEROL [Suspect]
     Active Substance: .ALPHA.-TOCOPHEROL
     Dosage: UNK
     Route: 065
  49. .ALPHA.-TOCOPHEROL [Suspect]
     Active Substance: .ALPHA.-TOCOPHEROL
     Dosage: UNK
     Route: 048
  50. .ALPHA.-TOCOPHEROL, D- [Suspect]
     Active Substance: .ALPHA.-TOCOPHEROL, D-
     Dosage: 7.5 MG
     Route: 048
  51. ALCOHOL [Suspect]
     Active Substance: ALCOHOL
     Dosage: UNK
  52. OMEGA-3 FATTY ACIDS [Suspect]
     Active Substance: OMEGA-3 FATTY ACIDS
     Dosage: 1 DF, 2X/DAY
     Route: 048
  53. OMEGA-3 FATTY ACIDS [Suspect]
     Active Substance: OMEGA-3 FATTY ACIDS
     Dosage: UNK
  54. RETINOL [Suspect]
     Active Substance: RETINOL
     Dosage: 188 MG, 2X/DAY
  55. MSM [Suspect]
     Active Substance: DIMETHYL SULFONE
     Dosage: 1000 MG

REACTIONS (6)
  - Drug-induced liver injury [Recovering/Resolving]
  - Hepatic cirrhosis [Recovering/Resolving]
  - Hepatic encephalopathy [Recovering/Resolving]
  - Hepatotoxicity [Recovering/Resolving]
  - Hepatic necrosis [Recovering/Resolving]
  - Drug interaction [Recovering/Resolving]
